FAERS Safety Report 7388805-9 (Version None)
Quarter: 2011Q2

REPORT INFORMATION
  Report Type: 
  Country: None (occurrence: None)
  Receive Date: 20110401
  Receipt Date: 20110307
  Transmission Date: 20111010
  Serious: No
  Sender: FDA-Public Use
  Company Number: US-B.I. PHARMACEUTICALS,INC./RIDGEFIELD-2011-BP-07143BP

PATIENT
  Sex: Female

DRUGS (10)
  1. PRADAXA [Suspect]
     Indication: ATRIAL FIBRILLATION
     Dosage: 300 MG
     Route: 048
     Dates: start: 20110302
  2. SIMVASTATIN [Concomitant]
     Indication: BLOOD CHOLESTEROL INCREASED
     Dosage: 80 MG
     Route: 048
  3. ALENDRONATE [Concomitant]
     Indication: OSTEOPOROSIS
     Dosage: 70 MG
     Route: 048
  4. QUINAPRIL [Concomitant]
     Indication: HYPERTENSION
     Dosage: 20 MG
     Route: 048
  5. HUMALOG [Concomitant]
     Indication: DIABETES MELLITUS
  6. WARFARIN [Concomitant]
     Indication: PROPHYLAXIS
     Dosage: 4 MG
     Route: 048
     Dates: start: 20110306
  7. LANTUS [Concomitant]
     Indication: DIABETES MELLITUS
     Dosage: 20 U
  8. ASPIRIN [Concomitant]
     Indication: PROPHYLAXIS
     Dosage: 81 MG
     Route: 048
  9. DILTIAZEM [Concomitant]
     Indication: ATRIAL FIBRILLATION
     Dosage: 240 MG
     Route: 048
  10. DIGOXIN [Concomitant]
     Indication: ATRIAL FIBRILLATION
     Dosage: 240 MG
     Route: 048

REACTIONS (4)
  - DYSPEPSIA [None]
  - HAEMATURIA [None]
  - BLOOD URINE PRESENT [None]
  - THROAT TIGHTNESS [None]
